FAERS Safety Report 7445306-7 (Version None)
Quarter: 2011Q2

REPORT INFORMATION
  Report Type: 
  Country: None (occurrence: None)
  Receive Date: 20110420
  Receipt Date: 20110408
  Transmission Date: 20111010
  Serious: Yes (Death, Hospitalization)
  Sender: FDA-Public Use
  Company Number: FK201100746

PATIENT
  Age: 18 Year
  Sex: Male

DRUGS (8)
  1. CARBOPLATIN [Suspect]
     Indication: LUNG NEOPLASM MALIGNANT
  2. GEMCITABINE [Suspect]
     Indication: LUNG NEOPLASM MALIGNANT
     Dosage: 1250 MG/M2
  3. VINORELBINE [Concomitant]
     Indication: LUNG NEOPLASM MALIGNANT
  4. CISPLATIN [Suspect]
     Indication: LUNG NEOPLASM MALIGNANT
     Dosage: 80 MG/M2
  5. PACLITAXEL [Suspect]
     Indication: LUNG NEOPLASM MALIGNANT
  6. ERLOTINIB HYDROCHLORIDE [Suspect]
     Indication: LUNG NEOPLASM MALIGNANT
  7. ANALGESICS (ANALGESICS) (ANALGESICS) [Concomitant]
  8. DOCETAXEL [Suspect]
     Indication: LUNG NEOPLASM MALIGNANT

REACTIONS (8)
  - HYPERSENSITIVITY [None]
  - PLEURITIC PAIN [None]
  - JOINT SWELLING [None]
  - ARTHRALGIA [None]
  - LUNG NEOPLASM MALIGNANT [None]
  - PNEUMONIA [None]
  - NEOPLASM PROGRESSION [None]
  - PLEURAL EFFUSION [None]
